FAERS Safety Report 21874870 (Version 1)
Quarter: 2023Q1

REPORT INFORMATION
  Report Type: Report from Study
  Country: AE (occurrence: None)
  Receive Date: 20230117
  Receipt Date: 20230117
  Transmission Date: 20230417
  Serious: Yes (Hospitalization)
  Sender: FDA-Public Use
  Company Number: 2023A004318

PATIENT
  Age: 85 Year
  Sex: Male
  Weight: 74.5 kg

DRUGS (1)
  1. CILGAVIMAB\TIXAGEVIMAB [Suspect]
     Active Substance: CILGAVIMAB\TIXAGEVIMAB
     Indication: COVID-19 prophylaxis
     Dosage: THE DOSE WILL BE ADMINISTERED AS 2 SEPARATE SEQUENTIAL IM INJECTIONS (ONE FOR AZD8895 AND ONE FOR...
     Route: 030

REACTIONS (1)
  - Pneumonia [Recovered/Resolved]

NARRATIVE: CASE EVENT DATE: 20220906
